FAERS Safety Report 20430188 (Version 1)
Quarter: 2022Q1

REPORT INFORMATION
  Report Type: Report from Study
  Country: FR (occurrence: FR)
  Receive Date: 20220204
  Receipt Date: 20220204
  Transmission Date: 20220423
  Serious: Yes (Hospitalization)
  Sender: FDA-Public Use
  Company Number: FR-SERVIER-S19013463

PATIENT

DRUGS (6)
  1. ONCASPAR [Suspect]
     Active Substance: PEGASPARGASE
     Indication: Acute lymphocytic leukaemia
     Dosage: 845 IU, ONE DOSE ON DAY 36
     Route: 042
     Dates: start: 20191015, end: 20191015
  2. VINCRISTINE SULFATE [Suspect]
     Active Substance: VINCRISTINE SULFATE
     Indication: Acute lymphocytic leukaemia
     Dosage: 1.1 MG, ONE DOSE
     Route: 042
     Dates: start: 20191109, end: 20191109
  3. METHOTREXATE [Suspect]
     Active Substance: METHOTREXATE
     Indication: Acute lymphocytic leukaemia
     Dosage: 20 MG, ONE DOSE ON DAY 50
     Route: 048
     Dates: start: 20191029, end: 20191029
  4. METHOTREXATE [Suspect]
     Active Substance: METHOTREXATE
     Dosage: 12 MG, ONE DOSE ON DAY 50
     Route: 037
     Dates: start: 20191106, end: 20191106
  5. DEXAMETHASONE [Suspect]
     Active Substance: DEXAMETHASONE
     Indication: Acute lymphocytic leukaemia
     Dosage: 5 MG, QD ON DAYS 57 TO 61
     Route: 048
     Dates: start: 20191105, end: 20191109
  6. MERCAPTOPURINE [Suspect]
     Active Substance: MERCAPTOPURINE
     Indication: Acute lymphocytic leukaemia
     Dosage: 40 MG, QD ON DAYS 57 TO 64
     Route: 048
     Dates: start: 20191105

REACTIONS (1)
  - Cardio-respiratory arrest [Not Recovered/Not Resolved]

NARRATIVE: CASE EVENT DATE: 20191116
